FAERS Safety Report 13600484 (Version 1)
Quarter: 2017Q2

REPORT INFORMATION
  Report Type: Spontaneous
  Country: US (occurrence: US)
  Receive Date: 20170531
  Receipt Date: 20170531
  Transmission Date: 20170830
  Serious: Yes (Other)
  Sender: FDA-Public Use
  Company Number: None

PATIENT
  Age: 55 Year
  Sex: Male
  Weight: 78.75 kg

DRUGS (1)
  1. AVODART [Suspect]
     Active Substance: DUTASTERIDE
     Indication: BENIGN PROSTATIC HYPERPLASIA
     Dosage: ?          QUANTITY:1 CAPSULE(S);?
     Route: 048
     Dates: start: 20100101, end: 20150901

REACTIONS (6)
  - Hypotension [None]
  - Ventricular extrasystoles [None]
  - Cardiac flutter [None]
  - Chest discomfort [None]
  - Palpitations [None]
  - Heart rate decreased [None]

NARRATIVE: CASE EVENT DATE: 20100201
